FAERS Safety Report 13680323 (Version 1)
Quarter: 2017Q2

REPORT INFORMATION
  Report Type: Spontaneous
  Country: SG (occurrence: SG)
  Receive Date: 20170622
  Receipt Date: 20170622
  Transmission Date: 20170830
  Serious: Yes (Other)
  Sender: FDA-Public Use
  Company Number: PHHY2017SG086886

PATIENT
  Age: 47 Year
  Sex: Female

DRUGS (2)
  1. QUETIAPINE. [Suspect]
     Active Substance: QUETIAPINE
     Indication: BIPOLAR DISORDER
     Dosage: 100 MG, AT NIGHT
     Route: 065
  2. QUETIAPINE. [Suspect]
     Active Substance: QUETIAPINE
     Indication: MANIA

REACTIONS (7)
  - Vomiting [Unknown]
  - Dizziness [Recovered/Resolved]
  - Headache [Unknown]
  - Fall [Unknown]
  - Neck pain [Unknown]
  - Skull fracture [Unknown]
  - Epistaxis [Recovered/Resolved]
